FAERS Safety Report 8760752 (Version 5)
Quarter: 2015Q2

REPORT INFORMATION
  Report Type: Report from Study
  Country: US (occurrence: US)
  Receive Date: 20120830
  Receipt Date: 20150428
  Transmission Date: 20150821
  Serious: Yes (Hospitalization)
  Sender: FDA-Public Use
  Company Number: US-MERCK-1208USA009877

PATIENT
  Age: 58 Year
  Sex: Male
  Weight: 106 kg

DRUGS (12)
  1. MK-5172 [Suspect]
     Active Substance: GRAZOPREVIR ANHYDROUS
     Indication: CHRONIC HEPATITIS C
     Dosage: 200 MG, QD
     Route: 048
     Dates: start: 20120111, end: 20120404
  2. PEGINTRON [Suspect]
     Active Substance: PEGINTERFERON ALFA-2B
     Indication: CHRONIC HEPATITIS C
     Dosage: 0.5 ML, QW
     Route: 048
     Dates: start: 20120110, end: 20120619
  3. REBETOL [Suspect]
     Active Substance: RIBAVIRIN
     Dosage: 3 DF, QPM
     Route: 048
     Dates: start: 20120111, end: 20120406
  4. PROTONIX [Concomitant]
     Active Substance: PANTOPRAZOLE SODIUM
     Indication: GASTROOESOPHAGEAL REFLUX DISEASE
     Dosage: 20 MG, QD
     Route: 048
     Dates: start: 20120425
  5. REBETOL [Suspect]
     Active Substance: RIBAVIRIN
     Dosage: 3 DF, QAM
     Route: 048
     Dates: start: 20120417, end: 20120430
  6. REBETOL [Suspect]
     Active Substance: RIBAVIRIN
     Dosage: 2 DF, QAM
     Route: 048
     Dates: start: 20120411, end: 20120416
  7. LISINOPRIL. [Concomitant]
     Active Substance: LISINOPRIL
     Indication: HYPERTENSION
     Dosage: 40 MG, QD
     Route: 048
     Dates: start: 20120211
  8. PAXIL [Concomitant]
     Active Substance: PAROXETINE HYDROCHLORIDE
     Indication: DEPRESSION
     Dosage: 40 MG, QD
     Route: 048
     Dates: start: 20120322
  9. REBETOL [Suspect]
     Active Substance: RIBAVIRIN
     Indication: CHRONIC HEPATITIS C
     Dosage: 3 DF, QAM
     Route: 048
     Dates: start: 20120111, end: 20120410
  10. REBETOL [Suspect]
     Active Substance: RIBAVIRIN
     Dosage: 2 DF, QAM
     Route: 048
     Dates: start: 20120501, end: 20120624
  11. BLINDED THERAPY [Suspect]
     Active Substance: INVESTIGATIONAL PRODUCT
     Indication: CHRONIC HEPATITIS C
     Dosage: 4 DF, TID
     Route: 048
     Dates: start: 20120208, end: 20120624
  12. REBETOL [Suspect]
     Active Substance: RIBAVIRIN
     Dosage: 2 DF, QPM
     Route: 048
     Dates: start: 20120407, end: 20120624

REACTIONS (1)
  - Bronchiolitis [Recovered/Resolved]

NARRATIVE: CASE EVENT DATE: 20120625
